FAERS Safety Report 5825942-1 (Version None)
Quarter: 2008Q3

REPORT INFORMATION
  Report Type: 
  Country: None (occurrence: None)
  Receive Date: 20080729
  Receipt Date: 20080722
  Transmission Date: 20090109
  Serious: Yes (Death, Hospitalization, Other)
  Sender: FDA-Public Use
  Company Number: PHHY2008JP13770

PATIENT
  Age: 77 Year
  Sex: Female

DRUGS (7)
  1. SANDOSTATIN [Suspect]
     Indication: GASTROINTESTINAL OBSTRUCTION
     Dosage: UNK
     Route: 042
     Dates: start: 20080709, end: 20080710
  2. SANDOSTATIN [Suspect]
     Indication: ABDOMINAL DISTENSION
  3. SOLU-MEDROL [Suspect]
     Dosage: 40 MG/DAY
     Route: 042
     Dates: start: 20080626, end: 20080711
  4. NEOPHYLLIN [Concomitant]
     Dosage: 250 MG
     Route: 048
     Dates: start: 20080626, end: 20080711
  5. SILECE [Concomitant]
     Dosage: 2 MG
     Route: 048
     Dates: start: 20080709, end: 20080710
  6. MORPHINE HCL ELIXIR [Concomitant]
     Dosage: 15 MG
     Route: 048
     Dates: start: 20080701, end: 20080711
  7. HUMAN RED BLOOD CELLS [Concomitant]
     Dosage: 4 DF
     Dates: start: 20080711, end: 20080711

REACTIONS (3)
  - HYPERCAPNIA [None]
  - HYPERGLYCAEMIA [None]
  - MALIGNANT NEOPLASM PROGRESSION [None]
